FAERS Safety Report 15307090 (Version 3)
Quarter: 2018Q4

REPORT INFORMATION
  Report Type: Spontaneous
  Country: US (occurrence: US)
  Receive Date: 20180822
  Receipt Date: 20181212
  Transmission Date: 20190204
  Serious: Yes (Hospitalization, Other)
  Sender: FDA-Public Use
  Company Number: US-PFIZER INC-2018307630

PATIENT
  Age: 4 Month
  Sex: Male
  Weight: 12.2 kg

DRUGS (5)
  1. GENOTROPIN MQ [Suspect]
     Active Substance: SOMATROPIN
     Dosage: 0.2 MG, DAILY
     Dates: start: 20180731
  2. GENOTROPIN MQ [Suspect]
     Active Substance: SOMATROPIN
     Indication: GROWTH HORMONE DEFICIENCY
     Dosage: 0.2 MG, DAILY
     Dates: start: 201606
  3. GENOTROPIN MQ [Suspect]
     Active Substance: SOMATROPIN
     Dosage: 0.2 MG, DAILY
     Dates: start: 20160619
  4. GENOTROPIN MQ [Suspect]
     Active Substance: SOMATROPIN
     Indication: SEPTO-OPTIC DYSPLASIA
     Dosage: 0.2 MG, DAILY
     Dates: start: 201605
  5. GENOTROPIN MQ [Suspect]
     Active Substance: SOMATROPIN
     Dosage: 0.4 MG, DAILY [(0.37 MG/KG/WEEK) AT 16 MONTHS OF AGE]
     Dates: start: 201705

REACTIONS (4)
  - Hypoglycaemia [Not Recovered/Not Resolved]
  - Vomiting [Recovered/Resolved]
  - Intracranial pressure increased [Recovered/Resolved]
  - Fontanelle bulging [Recovered/Resolved]

NARRATIVE: CASE EVENT DATE: 201605
